FAERS Safety Report 15391452 (Version 1)
Quarter: 2018Q3

REPORT INFORMATION
  Report Type: Spontaneous
  Country: US (occurrence: US)
  Receive Date: 20180910
  Receipt Date: 20180910
  Transmission Date: 20181010
  Serious: No
  Sender: FDA-Public Use
  Company Number: None

PATIENT
  Age: 43 Year
  Sex: Female

DRUGS (2)
  1. SIMPONI [Suspect]
     Active Substance: GOLIMUMAB
     Indication: RHEUMATOID ARTHRITIS
     Route: 058
     Dates: start: 201701
  2. SIMPONI [Suspect]
     Active Substance: GOLIMUMAB
     Indication: CROHN^S DISEASE
     Route: 058
     Dates: start: 201701

REACTIONS (1)
  - Drug effect decreased [None]

NARRATIVE: CASE EVENT DATE: 20180910
